FAERS Safety Report 6444042-3 (Version None)
Quarter: 2009Q4

REPORT INFORMATION
  Report Type: 
  Country: None (occurrence: None)
  Receive Date: 20091116
  Receipt Date: 20091116
  Transmission Date: 20100525
  Serious: Yes (Disabling, Other)
  Sender: FDA-Public Use
  Company Number: None

PATIENT
  Age: 17 Year
  Sex: Female
  Weight: 49.8957 kg

DRUGS (1)
  1. MINOCYCLINE HCL [Suspect]
     Indication: ACNE
     Dosage: 100 MG TWICE DAILY PO
     Route: 048
     Dates: start: 20080202, end: 20080426

REACTIONS (3)
  - BENIGN INTRACRANIAL HYPERTENSION [None]
  - HYPOTHYROIDISM [None]
  - LUPUS-LIKE SYNDROME [None]
